FAERS Safety Report 8083224-4 (Version None)
Quarter: 2012Q1

REPORT INFORMATION
  Report Type: 
  Country: None (occurrence: None)
  Receive Date: 20120127
  Receipt Date: 20110303
  Transmission Date: 20120608
  Serious: No
  Sender: FDA-Public Use
  Company Number: US-ABBOTT-11P-163-0709134-00

PATIENT
  Sex: Male
  Weight: 113.5 kg

DRUGS (6)
  1. NIACIN [Concomitant]
     Indication: BLOOD CHOLESTEROL INCREASED
     Route: 048
  2. HUMIRA [Suspect]
     Indication: PSORIATIC ARTHROPATHY
     Route: 058
     Dates: start: 20110211
  3. MAXZIDE [Concomitant]
     Indication: PRODUCT USED FOR UNKNOWN INDICATION
  4. COREG [Concomitant]
     Indication: HYPERTENSION
     Dosage: LOW DOSE
     Route: 048
  5. MULTI-VITAMIN [Concomitant]
     Indication: PRODUCT USED FOR UNKNOWN INDICATION
  6. ASPIRIN [Concomitant]
     Indication: FLUSHING
     Route: 048

REACTIONS (6)
  - SKIN LESION [None]
  - ECCHYMOSIS [None]
  - SINUS CONGESTION [None]
  - SCRATCH [None]
  - IMPAIRED HEALING [None]
  - SINUS HEADACHE [None]
